FAERS Safety Report 8508759 (Version 4)
Quarter: 2013Q1

REPORT INFORMATION
  Report Type: Spontaneous
  Country: US (occurrence: US)
  Receive Date: 20120412
  Receipt Date: 20130208
  Transmission Date: 20140127
  Serious: No
  Sender: FDA-Public Use
  Company Number: US-ASTRAZENECA-2011SE63009

PATIENT
  Age: 47 Year
  Sex: Female

DRUGS (1)
  1. NEXIUM [Suspect]
     Route: 048

REACTIONS (11)
  - Gastrooesophageal reflux disease [Unknown]
  - Feeling abnormal [Unknown]
  - Aphagia [Unknown]
  - Oropharyngeal pain [Unknown]
  - Migraine [Unknown]
  - Gastritis [Unknown]
  - Insomnia [Unknown]
  - Headache [Unknown]
  - Nausea [Unknown]
  - Abdominal discomfort [Unknown]
  - Drug dose omission [Unknown]
